FAERS Safety Report 7526220-5 (Version None)
Quarter: 2011Q2

REPORT INFORMATION
  Report Type: 
  Country: None (occurrence: None)
  Receive Date: 20110527
  Receipt Date: 20110517
  Transmission Date: 20111010
  Serious: Yes (Hospitalization)
  Sender: FDA-Public Use
  Company Number: UTC-006594

PATIENT
  Age: 39 Year
  Sex: Male

DRUGS (6)
  1. REMODULIN [Suspect]
     Indication: PULMONARY ARTERIAL HYPERTENSION
     Dosage: 144 UG/KG (0.1 UG/KG,1 IN 1 MIN),SUBCUTANEOUS, (0.092 UG/KG),SUBCUTANEOUS,(0.098 UG/KG),SUBCUTANEOUS
     Route: 058
     Dates: start: 20091101
  2. LASIX (FUROSEMIDE)(40 MILLIGRAM, TABLETS) [Concomitant]
  3. COUMADIN [Concomitant]
  4. REVATIO (SILDENAFIL CITRATE) (20 MILLIGRAM, TABLETS) [Concomitant]
  5. TRACLEER [Concomitant]
  6. PREDNISONE [Concomitant]

REACTIONS (6)
  - PALPITATIONS [None]
  - DIZZINESS [None]
  - INFUSION SITE PAIN [None]
  - COUGH [None]
  - SINUS CONGESTION [None]
  - RIGHT VENTRICULAR FAILURE [None]
